FAERS Safety Report 7424706-5 (Version None)
Quarter: 2011Q2

REPORT INFORMATION
  Report Type: 
  Country: None (occurrence: None)
  Receive Date: 20110419
  Receipt Date: 20110414
  Transmission Date: 20111010
  Serious: Yes (Hospitalization, Other)
  Sender: FDA-Public Use
  Company Number: US-AMGEN-USASP2011018290

PATIENT
  Age: 68 Year
  Sex: Male

DRUGS (7)
  1. AMIODARONE HCL [Concomitant]
  2. PREDNISONE [Concomitant]
     Dosage: 40 MG, QD
  3. CORTICOSTEROIDS [Concomitant]
     Indication: IDIOPATHIC THROMBOCYTOPENIC PURPURA
  4. NPLATE [Suspect]
     Indication: IDIOPATHIC THROMBOCYTOPENIC PURPURA
     Dosage: 10 A?G/KG, UNK
     Dates: start: 20110111, end: 20110414
  5. DANAZOL [Concomitant]
     Indication: IDIOPATHIC THROMBOCYTOPENIC PURPURA
  6. METOPROLOL SUCCINATE [Concomitant]
  7. EPOGEN [Concomitant]
     Dosage: 80000 UNIT, QWK

REACTIONS (8)
  - ASTHENIA [None]
  - RASH MACULAR [None]
  - RESPIRATORY TRACT INFECTION [None]
  - DYSPNOEA [None]
  - PANNICULITIS [None]
  - THERAPEUTIC RESPONSE DECREASED [None]
  - DRUG INEFFECTIVE [None]
  - RASH GENERALISED [None]
